FAERS Safety Report 5370500-9 (Version None)
Quarter: 2007Q2

REPORT INFORMATION
  Report Type: 
  Country: None (occurrence: None)
  Receive Date: 20070626
  Receipt Date: 20070620
  Transmission Date: 20071010
  Serious: Yes (Hospitalization)
  Sender: FDA-Public Use
  Company Number: FR-ASTRAZENECA-2007CG00950

PATIENT
  Age: 56 Year
  Sex: Female
  Weight: 65 kg

DRUGS (1)
  1. ARIMIDEX [Suspect]
     Indication: BREAST CANCER
     Route: 048
     Dates: start: 20070404, end: 20070504

REACTIONS (4)
  - ABDOMINAL PAIN [None]
  - APHTHOUS STOMATITIS [None]
  - MUCOSAL INFLAMMATION [None]
  - NAUSEA [None]
